FAERS Safety Report 13014336 (Version 2)
Quarter: 2016Q4

REPORT INFORMATION
  Report Type: Report from Study
  Country: None (occurrence: CA)
  Receive Date: 20161209
  Receipt Date: 20161223
  Transmission Date: 20170207
  Serious: Yes (Other)
  Sender: FDA-Public Use
  Company Number: CA-ABBVIE-16P-028-1805685-00

PATIENT
  Age: 45 Year
  Sex: Female
  Weight: 42.68 kg

DRUGS (1)
  1. LUPRON DEPOT [Suspect]
     Active Substance: LEUPROLIDE ACETATE
     Indication: ENDOMETRIOSIS
     Route: 030
     Dates: start: 20150421, end: 201611

REACTIONS (4)
  - Hypertension [Recovered/Resolved]
  - Autoimmune thyroiditis [Recovering/Resolving]
  - Migraine [Recovered/Resolved]
  - Oophorectomy [Recovering/Resolving]

NARRATIVE: CASE EVENT DATE: 201506
